FAERS Safety Report 18331069 (Version 2)
Quarter: 2021Q2

REPORT INFORMATION
  Report Type: Spontaneous
  Country: US (occurrence: US)
  Receive Date: 20200930
  Receipt Date: 20210604
  Transmission Date: 20210717
  Serious: Yes (Hospitalization)
  Sender: FDA-Public Use
  Company Number: US-VERTEX PHARMACEUTICALS-2020-017869

PATIENT
  Age: 70 Year
  Sex: Male

DRUGS (1)
  1. TRIKAFTA [Suspect]
     Active Substance: ELEXACAFTOR\IVACAFTOR\TEZACAFTOR
     Indication: CYSTIC FIBROSIS
     Dosage: 2 TABLETS 100 MG ELEXACAFTOR/ 50 MG TEZACAFTOR/ 75 MG IVACAFTOR AM 1 TABLET 150MG IVACAFTOR PM
     Route: 048
     Dates: start: 20200129

REACTIONS (7)
  - Contusion [Unknown]
  - Wound [Unknown]
  - Skin discolouration [Unknown]
  - Dehydration [Unknown]
  - Hyperhidrosis [Unknown]
  - Dyspnoea [Unknown]
  - Skin atrophy [Unknown]

NARRATIVE: CASE EVENT DATE: 2020
